FAERS Safety Report 24239631 (Version 3)
Quarter: 2025Q1

REPORT INFORMATION
  Report Type: Spontaneous
  Country: US (occurrence: US)
  Receive Date: 20240822
  Receipt Date: 20250227
  Transmission Date: 20250409
  Serious: No
  Sender: AVADEL CNS PHARMACEUTICALS, LLC
  Company Number: US-AVADEL CNS PHARMACEUTICALS, LLC-2024AVA01009

PATIENT
  Sex: Female
  Weight: 65.306 kg

DRUGS (27)
  1. LUMRYZ [Suspect]
     Active Substance: SODIUM OXYBATE
     Indication: Narcolepsy
     Dates: start: 202405, end: 2024
  2. LUMRYZ [Suspect]
     Active Substance: SODIUM OXYBATE
     Indication: Cataplexy
     Dosage: 4.5 G, ONCE NIGHTLY
     Route: 048
     Dates: start: 2024
  3. LUMRYZ [Suspect]
     Active Substance: SODIUM OXYBATE
     Indication: Obstructive sleep apnoea syndrome
  4. LUMRYZ [Suspect]
     Active Substance: SODIUM OXYBATE
     Indication: Nasal congestion
  5. LUMRYZ [Suspect]
     Active Substance: SODIUM OXYBATE
     Indication: Laryngeal oedema
  6. LUMRYZ [Suspect]
     Active Substance: SODIUM OXYBATE
     Indication: Dysphonia
  7. LUMRYZ [Suspect]
     Active Substance: SODIUM OXYBATE
     Indication: Tonsillar disorder
  8. LUMRYZ [Suspect]
     Active Substance: SODIUM OXYBATE
     Indication: Migraine with aura
  9. LUMRYZ [Suspect]
     Active Substance: SODIUM OXYBATE
     Indication: Snoring
  10. LUMRYZ [Suspect]
     Active Substance: SODIUM OXYBATE
     Indication: Narcolepsy
     Dosage: 6 G, ONCE NIGHTLY AT BEDTIME
     Route: 048
     Dates: start: 2024, end: 2024
  11. LUMRYZ [Suspect]
     Active Substance: SODIUM OXYBATE
     Indication: Cataplexy
  12. LUMRYZ [Suspect]
     Active Substance: SODIUM OXYBATE
     Indication: Obstructive sleep apnoea syndrome
  13. LUMRYZ [Suspect]
     Active Substance: SODIUM OXYBATE
     Indication: Nasal congestion
  14. LUMRYZ [Suspect]
     Active Substance: SODIUM OXYBATE
     Indication: Snoring
  15. LUMRYZ [Suspect]
     Active Substance: SODIUM OXYBATE
     Indication: Laryngeal oedema
  16. LUMRYZ [Suspect]
     Active Substance: SODIUM OXYBATE
     Indication: Dysphonia
  17. LUMRYZ [Suspect]
     Active Substance: SODIUM OXYBATE
     Indication: Tonsillar disorder
  18. LUMRYZ [Suspect]
     Active Substance: SODIUM OXYBATE
     Indication: Migraine with aura
  19. LUMRYZ [Suspect]
     Active Substance: SODIUM OXYBATE
     Indication: Narcolepsy
     Route: 048
     Dates: start: 2024, end: 2024
  20. LUMRYZ [Suspect]
     Active Substance: SODIUM OXYBATE
     Indication: Cataplexy
  21. PROBIOTICS NOS [Concomitant]
     Active Substance: PROBIOTICS NOS
  22. VITAMINS [Concomitant]
     Active Substance: VITAMINS
  23. WAKIX [Concomitant]
     Active Substance: PITOLISANT HYDROCHLORIDE
  24. TYLENOL [Concomitant]
     Active Substance: ACETAMINOPHEN
  25. HAIR SKIN NAILS [Concomitant]
  26. XYWAV [Concomitant]
     Active Substance: CALCIUM OXYBATE\MAGNESIUM OXYBATE\POTASSIUM OXYBATE\SODIUM OXYBATE
  27. SPIRONOLACTONE [Concomitant]
     Active Substance: SPIRONOLACTONE

REACTIONS (4)
  - Acne [Unknown]
  - Hypersomnia [Recovered/Resolved]
  - Therapeutic product effect decreased [Not Recovered/Not Resolved]
  - Unevaluable event [Recovered/Resolved]

NARRATIVE: CASE EVENT DATE: 20240101
